FAERS Safety Report 18294623 (Version 1)
Quarter: 2020Q3

REPORT INFORMATION
  Report Type: Report from Study
  Country: TH (occurrence: TH)
  Receive Date: 20200922
  Receipt Date: 20200922
  Transmission Date: 20201103
  Serious: Yes (Other)
  Sender: FDA-Public Use
  Company Number: NVSC2020TH245553

PATIENT
  Age: 59 Year
  Sex: Female

DRUGS (2)
  1. DABRAFENIB [Suspect]
     Active Substance: DABRAFENIB
     Indication: DRUG INTERACTION
     Dosage: 150 MG, BID
     Route: 048
     Dates: start: 20150612
  2. TRAMETINIB [Suspect]
     Active Substance: TRAMETINIB
     Indication: DRUG INTERACTION
     Dosage: 2 MG, QD
     Route: 048
     Dates: start: 20150612

REACTIONS (1)
  - Interstitial lung disease [Unknown]
